FAERS Safety Report 6528652-0 (Version None)
Quarter: 2010Q1

REPORT INFORMATION
  Report Type: 
  Country: None (occurrence: None)
  Receive Date: 20100106
  Receipt Date: 20091230
  Transmission Date: 20100710
  Serious: Yes (Hospitalization, Other)
  Sender: FDA-Public Use
  Company Number: US-MERCK-0701USA04631

PATIENT
  Age: 78 Year
  Sex: Male

DRUGS (5)
  1. ZETIA [Suspect]
     Indication: BLOOD CHOLESTEROL INCREASED
     Route: 048
     Dates: start: 20031201, end: 20051201
  2. PROSCAR [Concomitant]
     Route: 048
  3. ATENOLOL [Concomitant]
     Route: 065
  4. NORVASC [Concomitant]
     Route: 065
  5. COUMADIN [Concomitant]
     Route: 065

REACTIONS (11)
  - ABDOMINAL PAIN [None]
  - ASTHENIA [None]
  - BACK DISORDER [None]
  - BLINDNESS [None]
  - GASTRIC ATONY [None]
  - HERNIA [None]
  - MALAISE [None]
  - MUSCLE ATROPHY [None]
  - MUSCULAR WEAKNESS [None]
  - MYALGIA [None]
  - PAIN [None]
